FAERS Safety Report 9814653 (Version 2)
Quarter: 2014Q1

REPORT INFORMATION
  Report Type: Spontaneous
  Country: US (occurrence: US)
  Receive Date: 20140113
  Receipt Date: 20140211
  Transmission Date: 20141002
  Serious: Yes (Hospitalization)
  Sender: FDA-Public Use
  Company Number: US-B.I. PHARMACEUTICALS,INC./RIDGEFIELD-2014-BI-01021BP

PATIENT
  Age: 83 Year
  Sex: Female
  Weight: 59.87 kg

DRUGS (8)
  1. PRADAXA [Suspect]
     Indication: ATRIAL FIBRILLATION
     Dosage: 300 MG
     Route: 048
     Dates: start: 20110625, end: 20110906
  2. FUROSEMIDE [Concomitant]
     Dosage: 20 MG
     Route: 048
  3. METOPROLOL SUCCINATE [Concomitant]
     Dosage: 50 MG
     Route: 048
  4. FOLIC ACID [Concomitant]
     Dosage: 1 MG
     Route: 048
  5. ALDACTONE [Concomitant]
     Dosage: 25 MG
     Route: 048
  6. AMIODARONE HCL [Concomitant]
     Dosage: 400 MG
     Route: 048
  7. ASACOL [Concomitant]
     Dosage: 2400 MG
     Route: 048
  8. VITAMIN B12 [Concomitant]
     Dosage: 3.3333 MCG
     Route: 030

REACTIONS (1)
  - Gastrointestinal haemorrhage [Unknown]
